FAERS Safety Report 12680319 (Version 1)
Quarter: 2016Q3

REPORT INFORMATION
  Report Type: Spontaneous
  Country: US (occurrence: None)
  Receive Date: 20160823
  Receipt Date: 20160823
  Transmission Date: 20161109
  Serious: No
  Sender: FDA-Public Use
  Company Number: None

PATIENT
  Age: 61 Year
  Sex: Female

DRUGS (1)
  1. GATTEX [Suspect]
     Active Substance: TEDUGLUTIDE\WATER
     Indication: POST PROCEDURAL COMPLICATION
     Dates: start: 20160816

REACTIONS (4)
  - Vomiting [None]
  - Abdominal pain [None]
  - Back pain [None]
  - Intestinal obstruction [None]

NARRATIVE: CASE EVENT DATE: 20160819
